FAERS Safety Report 7073477-3 (Version None)
Quarter: 2010Q4

REPORT INFORMATION
  Report Type: 
  Country: None (occurrence: None)
  Receive Date: 20101029
  Receipt Date: 20100623
  Transmission Date: 20110411
  Serious: No
  Sender: FDA-Public Use
  Company Number: A0866779A

PATIENT
  Age: 71 Year
  Sex: Female

DRUGS (8)
  1. ADVAIR DISKUS 100/50 [Suspect]
     Indication: CHRONIC OBSTRUCTIVE PULMONARY DISEASE
     Dosage: 1PUFF TWICE PER DAY
     Route: 055
     Dates: start: 20040101
  2. THEOPHYLLINE [Concomitant]
  3. CILOX [Concomitant]
  4. TRAMADOL [Concomitant]
  5. NAPROXIN [Concomitant]
  6. SINGULAIR [Concomitant]
  7. ALBUTEROL SULFATE [Concomitant]
  8. SEREVENT [Concomitant]

REACTIONS (2)
  - EYE DISORDER [None]
  - VISION BLURRED [None]
